FAERS Safety Report 12431618 (Version 3)
Quarter: 2022Q4

REPORT INFORMATION
  Report Type: Report from Study
  Country: US (occurrence: US)
  Receive Date: 20160603
  Receipt Date: 20221104
  Transmission Date: 20230112
  Serious: Yes (Hospitalization, Other)
  Sender: FDA-Public Use
  Company Number: US-SHIRE-US201606609

PATIENT
  Age: 24 Year
  Sex: Male
  Weight: 55 kg

DRUGS (21)
  1. TEDUGLUTIDE [Suspect]
     Active Substance: TEDUGLUTIDE
     Indication: Short-bowel syndrome
     Dosage: 5 MILLIGRAM, QD
     Route: 042
     Dates: start: 20131223, end: 20170205
  2. TEDUGLUTIDE [Suspect]
     Active Substance: TEDUGLUTIDE
     Indication: Short-bowel syndrome
     Dosage: 5 MILLIGRAM, QD
     Route: 042
     Dates: start: 20131223, end: 20170205
  3. TEDUGLUTIDE [Suspect]
     Active Substance: TEDUGLUTIDE
     Indication: Short-bowel syndrome
     Dosage: 5 MILLIGRAM, QD
     Route: 042
     Dates: start: 20131223, end: 20170205
  4. TEDUGLUTIDE [Suspect]
     Active Substance: TEDUGLUTIDE
     Indication: Short-bowel syndrome
     Dosage: 5 MILLIGRAM, QD
     Route: 042
     Dates: start: 20131223, end: 20170205
  5. TEDUGLUTIDE [Suspect]
     Active Substance: TEDUGLUTIDE
     Dosage: 3.1 MILLIGRAM, QD
     Route: 042
     Dates: start: 20170206, end: 201912
  6. TEDUGLUTIDE [Suspect]
     Active Substance: TEDUGLUTIDE
     Dosage: 3.1 MILLIGRAM, QD
     Route: 042
     Dates: start: 20170206, end: 201912
  7. TEDUGLUTIDE [Suspect]
     Active Substance: TEDUGLUTIDE
     Dosage: 3.1 MILLIGRAM, QD
     Route: 042
     Dates: start: 20170206, end: 201912
  8. TEDUGLUTIDE [Suspect]
     Active Substance: TEDUGLUTIDE
     Dosage: 3.1 MILLIGRAM, QD
     Route: 042
     Dates: start: 20170206, end: 201912
  9. TPN [Concomitant]
     Active Substance: AMINO ACIDS\DEXTROSE\ELECTROLYTES NOS\SOYBEAN OIL
     Indication: Nutritional supplementation
     Dosage: UNK UNK, UNKNOWN
     Route: 051
  10. URSODIOL [Concomitant]
     Active Substance: URSODIOL
     Indication: Cholelithiasis
     Dosage: 300 MG, 3X/DAY:TID
     Route: 048
  11. DIPHENOXYLATE HYDROCHLORIDE AND ATROPINE SULFATE [Concomitant]
     Active Substance: ATROPINE SULFATE\DIPHENOXYLATE HYDROCHLORIDE
     Indication: Diarrhoea
     Dosage: 6 TABS, 1X/DAY:QD
     Route: 048
  12. PSYLLIUM HUSK                      /00029102/ [Concomitant]
     Indication: Nutritional supplementation
     Dosage: 3.4 G, 3X/DAY:TID
     Route: 048
  13. VITAMIN D                          /00107901/ [Concomitant]
     Indication: Vitamin D deficiency
     Dosage: 1 TABS, 1X/DAY:QD
     Route: 048
  14. FLUOXETINE HYDROCHLORIDE [Concomitant]
     Active Substance: FLUOXETINE HYDROCHLORIDE
     Indication: Depression
     Dosage: 10 MG, 1X/DAY:QD
     Route: 048
  15. GABAPENTIN [Concomitant]
     Active Substance: GABAPENTIN
     Indication: Depression
     Dosage: 300 MG, 1X/DAY:QD
     Route: 048
  16. MEROPENEM [Concomitant]
     Active Substance: MEROPENEM
     Indication: Bacterascites
     Dosage: 1 DF, UNKNOWN
     Route: 042
     Dates: start: 20140301
  17. ERTAPENEM [Concomitant]
     Active Substance: ERTAPENEM
     Indication: Bacterascites
     Dosage: 1 DOSAGE FORM
     Route: 065
     Dates: start: 20140317
  18. ERTAPENEM [Concomitant]
     Active Substance: ERTAPENEM
     Indication: Bacteraemia
     Dosage: 1 GRAM, QD
     Route: 042
     Dates: start: 20181109, end: 201901
  19. PANTOPRAZOLE SODIUM [Concomitant]
     Active Substance: PANTOPRAZOLE SODIUM
     Indication: Gastrointestinal disorder prophylaxis
     Dosage: 40 MILLIGRAM, QD
     Route: 048
  20. LOPERAMIDE HYDROCHLORIDE [Concomitant]
     Active Substance: LOPERAMIDE HYDROCHLORIDE
     Indication: Diarrhoea
     Dosage: 2 MILLIGRAM, QID
     Route: 048
     Dates: start: 20181205
  21. FLUCONAZOLE [Concomitant]
     Active Substance: FLUCONAZOLE
     Indication: Bacteraemia
     Dosage: 200 MILLIGRAM, QD
     Route: 042
     Dates: start: 20181116, end: 201901

REACTIONS (3)
  - Fungaemia [Recovered/Resolved]
  - Device related bacteraemia [Recovered/Resolved]
  - Device related infection [Recovered/Resolved]

NARRATIVE: CASE EVENT DATE: 20160510
